FAERS Safety Report 4579938-0 (Version None)
Quarter: 2005Q1

REPORT INFORMATION
  Report Type: 
  Country: None (occurrence: None)
  Receive Date: 20050214
  Receipt Date: 20050201
  Transmission Date: 20050727
  Serious: Yes (Hospitalization)
  Sender: FDA-Public Use
  Company Number: AU-SOLVAY-00205000375

PATIENT
  Age: 50 Year
  Sex: Male
  Weight: 80 kg

DRUGS (5)
  1. CARVEDILOL [Concomitant]
     Indication: ILL-DEFINED DISORDER
     Dosage: DAILY DOSE:  UNKNOWN
     Route: 065
  2. COVERSYL [Suspect]
     Indication: ILL-DEFINED DISORDER
     Dosage: DAILY DOSE:  UNKNOWN
     Route: 048
  3. EZETROL [Suspect]
     Indication: ESSENTIAL HYPERTENSION
     Dosage: DAILY DOSE: 10 MILLIGRAM(S)
     Route: 048
     Dates: start: 20040819, end: 20040930
  4. LASIX [Suspect]
     Indication: MYOCARDIAL ISCHAEMIA
     Dosage: DAILY DOSE:  UNKNOWN
     Route: 065
  5. LIPITOR [Suspect]
     Indication: ILL-DEFINED DISORDER
     Dosage: DAILY DOSE: 80 MILLIGRAM(S)
     Route: 048
     Dates: end: 20040927

REACTIONS (5)
  - ANAEMIA [None]
  - CARDIAC OUTPUT DECREASED [None]
  - HEPATIC ENZYME INCREASED [None]
  - HEPATITIS ACUTE [None]
  - PERIPHERAL ISCHAEMIA [None]
